FAERS Safety Report 23565220 (Version 1)
Quarter: 2024Q1

REPORT INFORMATION
  Report Type: Spontaneous
  Country: CA (occurrence: CA)
  Receive Date: 20240226
  Receipt Date: 20240226
  Transmission Date: 20240409
  Serious: Yes (Hospitalization, Other)
  Sender: FDA-Public Use
  Company Number: CA-VIIV HEALTHCARE LIMITED-CA2023175901

PATIENT
  Age: 57 Year
  Sex: Male

DRUGS (4)
  1. RILPIVIRINE [Suspect]
     Active Substance: RILPIVIRINE
     Indication: HIV infection
     Dosage: UNK, Q2M, 600MG/3ML CABOTEGRAVIR, 900MG/3ML RILPIVIRINE,
     Route: 030
     Dates: start: 20231117
  2. RILPIVIRINE [Suspect]
     Active Substance: RILPIVIRINE
     Dosage: UNK, Q2M, 600MG/3ML CABOTEGRAVIR, 900MG/3ML RILPIVIRINE
     Route: 030
  3. CABOTEGRAVIR [Suspect]
     Active Substance: CABOTEGRAVIR
     Indication: HIV infection
     Dosage: UNK, Q2M, 600MG/3ML CABOTEGRAVIR, 900MG/3ML RILPIVIRINE,
     Route: 030
     Dates: start: 20231117
  4. CABOTEGRAVIR [Suspect]
     Active Substance: CABOTEGRAVIR
     Dosage: UNK, Q2M, 600MG/3ML CABOTEGRAVIR, 900MG/3ML RILPIVIRINE
     Route: 030

REACTIONS (6)
  - Pneumonia [Recovered/Resolved]
  - Decreased appetite [Recovered/Resolved]
  - Sputum discoloured [Recovered/Resolved]
  - Productive cough [Recovered/Resolved]
  - Dysphagia [Recovered/Resolved]
  - Injection site pain [Recovered/Resolved]
